FAERS Safety Report 19436559 (Version 2)
Quarter: 2021Q2

REPORT INFORMATION
  Report Type: Spontaneous
  Country: JP (occurrence: JP)
  Receive Date: 20210618
  Receipt Date: 20210625
  Transmission Date: 20210717
  Serious: No
  Sender: FDA-Public Use
  Company Number: JP-ASTRAZENECA-2021A527783

PATIENT

DRUGS (1)
  1. FORXIGA [Suspect]
     Active Substance: DAPAGLIFLOZIN
     Dosage: 2.5MG UNKNOWN
     Route: 048
     Dates: start: 20210611

REACTIONS (2)
  - Wrong technique in product usage process [Unknown]
  - Impaired insulin secretion [Unknown]

NARRATIVE: CASE EVENT DATE: 202106
